FAERS Safety Report 8313416-8 (Version None)
Quarter: 2012Q2

REPORT INFORMATION
  Report Type: 
  Country: None (occurrence: None)
  Receive Date: 20120426
  Receipt Date: 20120420
  Transmission Date: 20120825
  Serious: Yes (Other)
  Sender: FDA-Public Use
  Company Number: GB-JNJFOC-20120313005

PATIENT
  Sex: Female

DRUGS (1)
  1. SIMPONI [Suspect]
     Indication: ILL-DEFINED DISORDER
     Route: 058
     Dates: start: 20120229

REACTIONS (3)
  - POSTOPERATIVE WOUND INFECTION [None]
  - DEPRESSED MOOD [None]
  - BACK INJURY [None]
